FAERS Safety Report 7303936-7 (Version None)
Quarter: 2011Q1

REPORT INFORMATION
  Report Type: 
  Country: None (occurrence: None)
  Receive Date: 20110221
  Receipt Date: 20110210
  Transmission Date: 20110831
  Serious: Yes (Other)
  Sender: FDA-Public Use
  Company Number: FI-ASTRAZENECA-2011SE08853

PATIENT
  Age: 21215 Day
  Sex: Female

DRUGS (2)
  1. NEXIUM [Suspect]
     Route: 048
     Dates: start: 20090518, end: 20101224
  2. FLIXOTIDE EVOHALER [Concomitant]
     Route: 048

REACTIONS (2)
  - LARYNGOSPASM [None]
  - APNOEA [None]
